FAERS Safety Report 24861994 (Version 2)
Quarter: 2025Q1

REPORT INFORMATION
  Report Type: Spontaneous
  Country: DE (occurrence: DE)
  Receive Date: 20250120
  Receipt Date: 20250130
  Transmission Date: 20250408
  Serious: No
  Sender: ASTELLAS
  Company Number: DE-ASTELLAS-2025-AER-003122

PATIENT
  Sex: Female

DRUGS (2)
  1. VEOZAH [Suspect]
     Active Substance: FEZOLINETANT
     Indication: Menopausal symptoms
     Route: 065
  2. VEOZAH [Suspect]
     Active Substance: FEZOLINETANT
     Route: 065

REACTIONS (1)
  - Therapeutic response shortened [Unknown]

NARRATIVE: CASE EVENT DATE: 20250101
